FAERS Safety Report 8879125 (Version 3)
Quarter: 2013Q2

REPORT INFORMATION
  Report Type: Spontaneous
  Country: GB (occurrence: None)
  Receive Date: 20121025
  Receipt Date: 20130531
  Transmission Date: 20140414
  Serious: Yes (Hospitalization, Other)
  Sender: FDA-Public Use
  Company Number: 1454633

PATIENT
  Age: 58 Year
  Sex: Male

DRUGS (21)
  1. METHOTREXATE [Suspect]
     Indication: PRODUCT USED FOR UNKNOWN INDICATION
  2. NICORANDIL [Suspect]
     Indication: PRODUCT USED FOR UNKNOWN INDICATION
     Dosage: 30 MG MILLIGRAM(S), 2 DAY, ORAL
     Route: 048
  3. ETANERCEPT [Suspect]
     Indication: RHEUMATOID ARTHRITIS
     Dosage: (1 WEEK)
     Route: 058
     Dates: start: 20120420, end: 20120519
  4. ACETYLSALICYLIC ACID [Suspect]
     Indication: PRODUCT USED FOR UNKNOWN INDICATION
     Route: 048
  5. ISMN [Suspect]
     Indication: PRODUCT USED FOR UNKNOWN INDICATION
  6. ATORVASTATIN CALCIUM [Concomitant]
  7. LIRAGLUTIDE [Concomitant]
  8. AMLODIPINE [Concomitant]
  9. INSULIN [Concomitant]
  10. BISOPROLOL [Concomitant]
  11. CANDESARTAN [Concomitant]
  12. FUROSEMIDE [Concomitant]
  13. NIZATIDINE [Concomitant]
  14. MORPHINE SULFATE [Concomitant]
  15. PARACETAMOL [Concomitant]
  16. PIZOTIFEN [Concomitant]
  17. GTN [Concomitant]
  18. SALBUTAMOL [Concomitant]
  19. RIVAROXABAN [Concomitant]
  20. AMITRIPTYLINE [Concomitant]
  21. GABAPENTIN [Concomitant]

REACTIONS (4)
  - Cellulitis [None]
  - Thrombocytopenia [None]
  - Tonsillar ulcer [None]
  - Sick sinus syndrome [None]
